FAERS Safety Report 9205857 (Version 1)
Quarter: 2013Q2

REPORT INFORMATION
  Report Type: Spontaneous
  Country: NZ (occurrence: None)
  Receive Date: 20130401
  Receipt Date: 20130401
  Transmission Date: 20140414
  Serious: Yes (Other)
  Sender: FDA-Public Use
  Company Number: VAL_02237_2013

PATIENT
  Age: 71 Year
  Sex: Female

DRUGS (3)
  1. METOPROLOL (METOPROLOL-METOPROLOL TARTRATE) [Suspect]
     Indication: PRODUCT USED FOR UNKNOWN INDICATION
     Route: 048
  2. ACICLOVIR [Concomitant]
  3. LEVOTHYROXINE [Concomitant]

REACTIONS (4)
  - Product quality issue [None]
  - Chest pain [None]
  - Palpitations [None]
  - Therapeutic response decreased [None]
